FAERS Safety Report 25179492 (Version 2)
Quarter: 2025Q2

REPORT INFORMATION
  Report Type: Report from Study
  Country: US (occurrence: US)
  Receive Date: 20250409
  Receipt Date: 20250616
  Transmission Date: 20250717
  Serious: Yes (Other)
  Sender: NOVARTIS
  Company Number: US-002147023-NVSC2025US058602

PATIENT
  Sex: Female

DRUGS (1)
  1. KESIMPTA [Suspect]
     Active Substance: OFATUMUMAB
     Indication: Product used for unknown indication
     Route: 065

REACTIONS (7)
  - Multiple sclerosis [Unknown]
  - Fatigue [Unknown]
  - Influenza like illness [Unknown]
  - Insomnia [Unknown]
  - Chills [Unknown]
  - Nasopharyngitis [Unknown]
  - Pain [Unknown]
